FAERS Safety Report 7909762-X (Version None)
Quarter: 2011Q4

REPORT INFORMATION
  Report Type: 
  Country: None (occurrence: None)
  Receive Date: 20111111
  Receipt Date: 20110728
  Transmission Date: 20120403
  Serious: No
  Sender: FDA-Public Use
  Company Number: US-BAYER-2011-068336

PATIENT
  Weight: 81 kg

DRUGS (1)
  1. ALEVE (CAPLET) [Suspect]
     Indication: SPINAL COLUMN STENOSIS
     Dosage: 2 DF, QD
     Route: 048

REACTIONS (1)
  - SPINAL COLUMN STENOSIS [None]
